FAERS Safety Report 25413595 (Version 2)
Quarter: 2025Q3

REPORT INFORMATION
  Report Type: Spontaneous
  Country: AU (occurrence: AU)
  Receive Date: 20250609
  Receipt Date: 20250702
  Transmission Date: 20251020
  Serious: Yes (Death, Other)
  Sender: TAKEDA
  Company Number: AU-TAKEDA-2025TUS053046

PATIENT

DRUGS (1)
  1. MARIBAVIR [Suspect]
     Active Substance: MARIBAVIR
     Indication: Product used for unknown indication

REACTIONS (1)
  - Death [Fatal]
